FAERS Safety Report 9836899 (Version 2)
Quarter: 2014Q1

REPORT INFORMATION
  Report Type: Spontaneous
  Country: US (occurrence: US)
  Receive Date: 20140123
  Receipt Date: 20140123
  Transmission Date: 20141002
  Serious: No
  Sender: FDA-Public Use
  Company Number: US-PFIZER INC-2014018717

PATIENT
  Sex: 0

DRUGS (1)
  1. SERTRALINE HCL [Suspect]
     Dosage: 12.5 MG (1/2 TABLET OF 25 MG), UNK

REACTIONS (6)
  - Dry mouth [Unknown]
  - Dizziness [Unknown]
  - Confusional state [Unknown]
  - Decreased appetite [Unknown]
  - Apathy [Unknown]
  - Insomnia [Unknown]
